FAERS Safety Report 8522846 (Version 11)
Quarter: 2015Q2

REPORT INFORMATION
  Report Type: Spontaneous
  Country: TR (occurrence: TR)
  Receive Date: 20120419
  Receipt Date: 20150615
  Transmission Date: 20150821
  Serious: Yes (Other)
  Sender: FDA-Public Use
  Company Number: TR-AMGEN-TURSP2012022836

PATIENT
  Age: 40 Year
  Sex: Female
  Weight: 72 kg

DRUGS (5)
  1. COLCHICINE. [Concomitant]
     Active Substance: COLCHICINE
     Dosage: UNK
  2. ENBREL [Suspect]
     Active Substance: ETANERCEPT
     Indication: ANKYLOSING SPONDYLITIS
     Dosage: 50 MG, WEEKLY
     Route: 058
     Dates: start: 20120322, end: 201404
  3. MATOFIN [Concomitant]
     Dosage: UNK
  4. ENBREL [Suspect]
     Active Substance: ETANERCEPT
     Dosage: UNK
     Route: 065
     Dates: start: 201404, end: 201411
  5. ENBREL [Suspect]
     Active Substance: ETANERCEPT
     Dosage: 50 MG, WEEKLY
     Route: 058
     Dates: start: 20141103

REACTIONS (16)
  - Blood pressure increased [Recovered/Resolved]
  - Menstruation irregular [Not Recovered/Not Resolved]
  - Skin tightness [Not Recovered/Not Resolved]
  - Increased appetite [Not Recovered/Not Resolved]
  - Menorrhagia [Unknown]
  - Blood pressure decreased [Recovered/Resolved]
  - Fungal skin infection [Not Recovered/Not Resolved]
  - Headache [Recovering/Resolving]
  - Injection site swelling [Recovered/Resolved]
  - Pruritus [Not Recovered/Not Resolved]
  - Skin disorder [Not Recovered/Not Resolved]
  - Dry skin [Not Recovered/Not Resolved]
  - Rash [Not Recovered/Not Resolved]
  - Weight increased [Not Recovered/Not Resolved]
  - Hormone level abnormal [Not Recovered/Not Resolved]
  - Injection site pain [Not Recovered/Not Resolved]

NARRATIVE: CASE EVENT DATE: 201203
